FAERS Safety Report 7485875-4 (Version None)
Quarter: 2011Q2

REPORT INFORMATION
  Report Type: 
  Country: None (occurrence: None)
  Receive Date: 20110517
  Receipt Date: 20110114
  Transmission Date: 20111010
  Serious: Yes (Disabling, Other)
  Sender: FDA-Public Use
  Company Number: US-BAYER-2011-005060

PATIENT
  Age: 54 Year
  Sex: Male

DRUGS (16)
  1. SINGULAIR [Concomitant]
  2. UROXATRAL [Concomitant]
  3. VIRAMUNE [Concomitant]
  4. NEXIUM [Concomitant]
  5. DILAUDID [Concomitant]
  6. PRAVACHOL [Concomitant]
  7. LIBRIUM [Concomitant]
  8. RESTORIL [Concomitant]
  9. ATACAND [Concomitant]
  10. ANDROGEL [Concomitant]
  11. MORPHINE [Concomitant]
  12. ROBAXIN [Concomitant]
  13. EPIVIR [Concomitant]
  14. AVELOX [Suspect]
     Indication: PROSTATITIS
     Dosage: 400 MG, QD
     Route: 048
     Dates: start: 20100604, end: 20100622
  15. CIAGEN [Concomitant]
  16. WELLBUTRIN [Concomitant]

REACTIONS (1)
  - TENDONITIS [None]
